FAERS Safety Report 19804573 (Version 3)
Quarter: 2021Q4

REPORT INFORMATION
  Report Type: Spontaneous
  Country: US (occurrence: US)
  Receive Date: 20210908
  Receipt Date: 20211013
  Transmission Date: 20220303
  Serious: Yes (Other)
  Sender: FDA-Public Use
  Company Number: US-PFIZER INC-2020344249

PATIENT
  Age: 64 Year

DRUGS (3)
  1. FELDENE [Suspect]
     Active Substance: PIROXICAM
     Indication: Pain
     Dosage: 20 MG, DAILY
     Route: 048
  2. FELDENE [Suspect]
     Active Substance: PIROXICAM
     Dosage: 20 MG, 1X/DAY AS NEEDED (PRN)
     Route: 048
  3. FELDENE [Suspect]
     Active Substance: PIROXICAM
     Dosage: 10 MG, DAILY
     Route: 048

REACTIONS (2)
  - Immunodeficiency [Unknown]
  - Pain [Unknown]
